FAERS Safety Report 5576731-7 (Version None)
Quarter: 2007Q4

REPORT INFORMATION
  Report Type: 
  Country: None (occurrence: None)
  Receive Date: 20071228
  Receipt Date: 20071220
  Transmission Date: 20080405
  Serious: Yes (Other)
  Sender: FDA-Public Use
  Company Number: KR-JNJFOC-20071204418

PATIENT
  Sex: Female

DRUGS (8)
  1. SPORANOX [Suspect]
     Indication: TINEA PEDIS
     Dosage: CYCLE 2
     Route: 048
  2. SPORANOX [Suspect]
     Indication: ONYCHOMYCOSIS
     Dosage: CYCLE 1
     Route: 048
  3. TRIAMCINOLONE [Concomitant]
     Route: 065
  4. TRIAMCINOLONE [Concomitant]
     Route: 065
  5. TRIAMCINOLONE [Concomitant]
     Indication: KELOID SCAR
     Route: 065
  6. LIDOCAINE [Concomitant]
     Route: 065
  7. LIDOCAINE [Concomitant]
     Route: 065
  8. LIDOCAINE [Concomitant]
     Indication: KELOID SCAR
     Route: 065

REACTIONS (1)
  - CUSHING'S SYNDROME [None]
